FAERS Safety Report 4662314-X (Version None)
Quarter: 2005Q2

REPORT INFORMATION
  Report Type: 
  Country: None (occurrence: None)
  Receive Date: 20050512
  Receipt Date: 20050429
  Transmission Date: 20051028
  Serious: Yes (Hospitalization)
  Sender: FDA-Public Use
  Company Number: US015202

PATIENT
  Age: 35 Year
  Sex: Female

DRUGS (4)
  1. MODIODAL [Suspect]
     Dosage: 100 MG QD ORAL
     Route: 048
     Dates: start: 20040315
  2. AVONEX [Suspect]
     Dosage: 30 UG QWKLY INTRAMUSCULAR
     Route: 030
     Dates: start: 19981115
  3. LEXOMIL [Suspect]
     Dates: start: 19980915
  4. LAROXYL [Suspect]
     Dosage: 15 MG QD ORAL
     Route: 048
     Dates: start: 19980915

REACTIONS (1)
  - BREAST CANCER FEMALE [None]
